FAERS Safety Report 13747339 (Version 1)
Quarter: 2017Q3

REPORT INFORMATION
  Report Type: Spontaneous
  Country: DK (occurrence: DK)
  Receive Date: 20170712
  Receipt Date: 20170712
  Transmission Date: 20171127
  Serious: Yes (Hospitalization, Disabling, Other)
  Sender: FDA-Public Use
  Company Number: DK-MYLANLABS-2017M1040449

PATIENT

DRUGS (1)
  1. TAMOXIFEN MYLAN [Suspect]
     Active Substance: TAMOXIFEN
     Indication: DESMOID TUMOUR
     Dosage: DOSIS: FRA JAN2015 BLEV DOSIS NEDSAT TIL OPHOR I AUG2015. STYRKE: 30 MG
     Route: 048
     Dates: start: 2002, end: 201508

REACTIONS (3)
  - Deep vein thrombosis [Recovered/Resolved]
  - Impaired healing [Unknown]
  - Visual impairment [Not Recovered/Not Resolved]

NARRATIVE: CASE EVENT DATE: 2004
